FAERS Safety Report 10334588 (Version 1)
Quarter: 2014Q3

REPORT INFORMATION
  Report Type: Spontaneous
  Country: US (occurrence: US)
  Receive Date: 20140723
  Receipt Date: 20140723
  Transmission Date: 20150326
  Serious: No
  Sender: FDA-Public Use
  Company Number: US-UNITED THERAPEUTICS-UTC-045810

PATIENT
  Sex: Female
  Weight: 78.47 kg

DRUGS (4)
  1. SILDENAFIL [Concomitant]
     Active Substance: SILDENAFIL
  2. LETAIRIS [Concomitant]
     Active Substance: AMBRISENTAN
  3. COUMADIN [Concomitant]
     Active Substance: WARFARIN SODIUM
  4. REMODULIN [Suspect]
     Active Substance: TREPROSTINIL
     Dosage: 0.035 UG/KG/MIN
     Route: 058
     Dates: start: 20071109

REACTIONS (2)
  - Catheter site extravasation [Unknown]
  - Drug dose omission [Unknown]
